FAERS Safety Report 4422069-0 (Version None)
Quarter: 2004Q3

REPORT INFORMATION
  Report Type: 
  Country: None (occurrence: None)
  Receive Date: 20040728
  Receipt Date: 20040721
  Transmission Date: 20050211
  Serious: No
  Sender: FDA-Public Use
  Company Number: CART-10351

PATIENT
  Age: 50 Year
  Sex: Male
  Weight: 88.4514 kg

DRUGS (2)
  1. CARTICEL [Suspect]
     Indication: ARTHROPATHY
     Dosage: 1 NA ONCE IS
     Dates: start: 19961220, end: 19961220
  2. CARTICEL [Suspect]
     Indication: BONE DISORDER
     Dosage: 1 NA ONCE IS
     Dates: start: 19961220, end: 19961220

REACTIONS (5)
  - ARTHRALGIA [None]
  - CHONDROPATHY [None]
  - GRAFT COMPLICATION [None]
  - LOCALISED OSTEOARTHRITIS [None]
  - LOOSE BODY IN JOINT [None]
